FAERS Safety Report 24860078 (Version 2)
Quarter: 2025Q1

REPORT INFORMATION
  Report Type: Spontaneous
  Country: US (occurrence: US)
  Receive Date: 20250120
  Receipt Date: 20250204
  Transmission Date: 20250408
  Serious: No
  Sender: ROCHE
  Company Number: US-ROCHE-10000180916

PATIENT
  Age: 63 Year
  Sex: Female

DRUGS (8)
  1. TRASTUZUMAB [Suspect]
     Active Substance: TRASTUZUMAB
     Indication: HER2 positive breast cancer
     Route: 065
  2. ALPELISIB [Suspect]
     Active Substance: ALPELISIB
     Indication: HER2 positive breast cancer
     Route: 065
  3. LAPATINIB [Concomitant]
     Active Substance: LAPATINIB
  4. CAPECITABINE [Concomitant]
     Active Substance: CAPECITABINE
  5. PACLITAXEL [Concomitant]
     Active Substance: PACLITAXEL
  6. vinorelbinee [Concomitant]
  7. MARGETUXIMAB [Concomitant]
     Active Substance: MARGETUXIMAB
  8. ERIBULIN [Concomitant]
     Active Substance: ERIBULIN

REACTIONS (1)
  - Mucosal inflammation [Unknown]
